FAERS Safety Report 9292159 (Version 1)
Quarter: 2013Q2

REPORT INFORMATION
  Report Type: Spontaneous
  Country: IT (occurrence: IT)
  Receive Date: 20130516
  Receipt Date: 20130516
  Transmission Date: 20140414
  Serious: Yes (Other)
  Sender: FDA-Public Use
  Company Number: IT-JNJFOC-20130503927

PATIENT
  Sex: 0

DRUGS (2)
  1. DARUNAVIR [Suspect]
     Indication: HIV INFECTION
     Route: 065
  2. RITONAVIR [Suspect]
     Indication: HIV INFECTION
     Route: 065

REACTIONS (1)
  - Hepatic failure [Unknown]
